FAERS Safety Report 10672959 (Version 2)
Quarter: 2014Q4

REPORT INFORMATION
  Report Type: Report from Study
  Country: US (occurrence: US)
  Receive Date: 20141223
  Receipt Date: 20141223
  Transmission Date: 20150529
  Serious: Yes (Hospitalization)
  Sender: FDA-Public Use
  Company Number: US-ACTELION-A-US2014-108142

PATIENT
  Age: 65 Year
  Sex: Female

DRUGS (7)
  1. OMEPRAZOLE. [Concomitant]
     Active Substance: OMEPRAZOLE
     Dosage: 40 MG, UNK
     Dates: start: 201309
  2. FUROSEMIDE. [Concomitant]
     Active Substance: FUROSEMIDE
     Dosage: 20 MG, QAM
     Dates: start: 201209
  3. MICARDIS [Concomitant]
     Active Substance: TELMISARTAN
     Dosage: 80 MG, UNK
     Dates: start: 201209
  4. RIOCIGUAT [Concomitant]
     Active Substance: RIOCIGUAT
     Dosage: 1 MG, UNK
     Dates: start: 201209
  5. AMBIEN [Concomitant]
     Active Substance: ZOLPIDEM TARTRATE
     Dosage: 2.5 MG, QPM
     Dates: start: 201209
  6. HYDRALAZINE [Concomitant]
     Active Substance: HYDRALAZINE HYDROCHLORIDE
     Dosage: 25 MG, QD
     Dates: start: 201209
  7. TRACLEER [Suspect]
     Active Substance: BOSENTAN\BOSENTAN MONOHYDRATE
     Indication: PULMONARY HYPERTENSION
     Dosage: 125 MG, UNK
     Route: 048
     Dates: start: 201304

REACTIONS (4)
  - Productive cough [Recovering/Resolving]
  - Hypoxia [Recovering/Resolving]
  - Parainfluenzae virus infection [Recovering/Resolving]
  - Respirovirus test positive [Recovering/Resolving]

NARRATIVE: CASE EVENT DATE: 20141105
